FAERS Safety Report 8849502 (Version 1)
Quarter: 2012Q4

REPORT INFORMATION
  Report Type: Spontaneous
  Country: US (occurrence: None)
  Receive Date: 20121018
  Receipt Date: 20121018
  Transmission Date: 20130627
  Serious: Yes (Hospitalization)
  Sender: FDA-Public Use
  Company Number: None

PATIENT
  Sex: Male
  Weight: 96 kg

DRUGS (1)
  1. WARFARIN [Suspect]
     Indication: ATRIAL FIBRILLATION
     Dosage: 7.5mg daily po
     Route: 048

REACTIONS (5)
  - International normalised ratio increased [None]
  - Diverticulum intestinal haemorrhagic [None]
  - Dyspnoea exertional [None]
  - Haemorrhagic erosive gastritis [None]
  - Frequent bowel movements [None]
